FAERS Safety Report 24228047 (Version 1)
Quarter: 2024Q3

REPORT INFORMATION
  Report Type: Spontaneous
  Country: US (occurrence: US)
  Receive Date: 20240820
  Receipt Date: 20240820
  Transmission Date: 20241016
  Serious: Yes (Hospitalization, Other)
  Sender: GLENMARK
  Company Number: US-MLMSERVICE-20240730-PI148178-00306-1

PATIENT

DRUGS (7)
  1. TACROLIMUS [Suspect]
     Active Substance: TACROLIMUS
     Indication: Immunosuppressant drug therapy
     Dosage: UNK; ORIGINAL TACROLIMUS DOSING
     Route: 065
  2. TACROLIMUS [Suspect]
     Active Substance: TACROLIMUS
     Dosage: UNK
     Route: 065
  3. TACROLIMUS [Suspect]
     Active Substance: TACROLIMUS
     Dosage: UNK; DECREASED THE TACROLIMUS REGIMEN
     Route: 065
  4. TACROLIMUS [Suspect]
     Active Substance: TACROLIMUS
     Dosage: 0.5 MILLIGRAM, BID; BEFORE DISCHARGE, THE DOSE WAS LOWERED TO 0.5 MG TWICE A DAY
     Route: 065
  5. NIFEDIPINE [Concomitant]
     Active Substance: NIFEDIPINE
     Indication: Hypertension
     Dosage: UNK
     Route: 065
  6. METOPROLOL [Concomitant]
     Active Substance: METOPROLOL
     Indication: Hypertension
     Dosage: UNK
     Route: 065
  7. LORAZEPAM [Concomitant]
     Active Substance: LORAZEPAM
     Indication: Anxiety
     Dosage: UNK
     Route: 065

REACTIONS (3)
  - Immunosuppressant drug level increased [Recovered/Resolved]
  - Acute coronary syndrome [Recovered/Resolved]
  - Gastrointestinal disorder [Recovered/Resolved]
